FAERS Safety Report 8524250-8 (Version None)
Quarter: 2012Q3

REPORT INFORMATION
  Report Type: 
  Country: None (occurrence: None)
  Receive Date: 20120720
  Receipt Date: 20120712
  Transmission Date: 20120928
  Serious: Yes (Other)
  Sender: FDA-Public Use
  Company Number: FR-PFIZER INC-2012171562

PATIENT
  Age: 24 Year
  Sex: Female
  Weight: 64 kg

DRUGS (6)
  1. ZARZIO [Concomitant]
     Dosage: 30 IU, 1X/DAY
  2. ATGAM [Suspect]
     Indication: BONE MARROW FAILURE
     Dosage: 2560 MG, 1X/DAY
     Dates: start: 20120125, end: 20120128
  3. SOLU-MEDROL [Concomitant]
     Dosage: UNK
     Dates: start: 20120125
  4. ATOVAQUONE [Concomitant]
     Indication: INFECTION PROPHYLAXIS
     Dosage: 600 MG, 1X/DAY
  5. CICLOSPORIN [Concomitant]
     Indication: BONE MARROW FAILURE
     Dosage: UNK
     Dates: start: 20120125
  6. VALACYCLOVIR HYDROCHLORIDE [Concomitant]
     Indication: INFECTION PROPHYLAXIS
     Dosage: 500 MG, 2X/DAY
     Route: 048

REACTIONS (6)
  - CHOLESTASIS [None]
  - PYREXIA [None]
  - CYTOLYTIC HEPATITIS [None]
  - INFUSION RELATED REACTION [None]
  - URTICARIA [None]
  - TONSILLITIS [None]
